FAERS Safety Report 18777737 (Version 1)
Quarter: 2021Q1

REPORT INFORMATION
  Report Type: Spontaneous
  Country: US (occurrence: US)
  Receive Date: 20210122
  Receipt Date: 20210122
  Transmission Date: 20210419
  Serious: No
  Sender: FDA-Public Use
  Company Number: US-PFIZER INC-2019409646

PATIENT
  Age: 57 Year
  Sex: Female
  Weight: 72.57 kg

DRUGS (2)
  1. CHANTIX [Suspect]
     Active Substance: VARENICLINE TARTRATE
     Indication: SMOKING CESSATION THERAPY
     Dosage: STARTER PACK IN 2010 OR 2011
  2. CHANTIX [Suspect]
     Active Substance: VARENICLINE TARTRATE
     Dosage: BLUE PILL, 2X/DAY IN 2010 OR 2011

REACTIONS (1)
  - Abnormal dreams [Unknown]
